FAERS Safety Report 10689823 (Version 1)
Quarter: 2015Q1

REPORT INFORMATION
  Report Type: Spontaneous
  Country: FR (occurrence: FR)
  Receive Date: 20150105
  Receipt Date: 20150105
  Transmission Date: 20150720
  Serious: Yes (Hospitalization)
  Sender: FDA-Public Use
  Company Number: FR-JNJFOC-20141217484

PATIENT
  Age: 92 Year
  Sex: Male

DRUGS (8)
  1. HALDOL [Suspect]
     Active Substance: HALOPERIDOL
     Indication: PRODUCT USED FOR UNKNOWN INDICATION
     Route: 048
  2. AMLOR [Concomitant]
     Active Substance: AMLODIPINE BESYLATE
     Dosage: 5(UNITS NOT REPORTED)
     Route: 065
  3. KARDEGIC [Concomitant]
     Active Substance: ASPIRIN LYSINE
     Dosage: 75(UNITS NOT REPORTED)
     Route: 065
  4. LASILIX [Concomitant]
     Active Substance: FUROSEMIDE
     Dosage: 20 (UNITS NOT REPORTED)
     Route: 065
  5. DIFFU K [Concomitant]
     Active Substance: POTASSIUM CHLORIDE
     Route: 065
  6. TRANXEN [Suspect]
     Active Substance: CLORAZEPATE DIPOTASSIUM
     Indication: SEDATION
     Route: 048
     Dates: start: 20140717, end: 20140717
  7. INIPOMP [Concomitant]
     Active Substance: PANTOPRAZOLE SODIUM
     Dosage: 40 (UNITS NOT REPORTED)
     Route: 065
  8. CORDARONE [Concomitant]
     Active Substance: AMIODARONE HYDROCHLORIDE
     Dosage: 200 (UNITS NOT REPORTED)
     Route: 065

REACTIONS (6)
  - Pneumonia aspiration [Recovered/Resolved]
  - Azotaemia [None]
  - Presbyopia [None]
  - Bronchial obstruction [None]
  - Hypernatraemia [None]
  - Somnolence [Recovered/Resolved]

NARRATIVE: CASE EVENT DATE: 20140719
